FAERS Safety Report 18597246 (Version 1)
Quarter: 2020Q4

REPORT INFORMATION
  Report Type: Spontaneous
  Country: US (occurrence: US)
  Receive Date: 20201209
  Receipt Date: 20201209
  Transmission Date: 20210114
  Serious: No
  Sender: FDA-Public Use
  Company Number: US-IBSA PHARMA INC.-2020IBS000015

PATIENT
  Sex: Female

DRUGS (1)
  1. TIROSINT [Suspect]
     Active Substance: LEVOTHYROXINE SODIUM
     Indication: HYPOTHYROIDISM
     Dosage: AROUND 1 AM, AT BEDTIME
     Route: 065
     Dates: start: 20200127

REACTIONS (3)
  - Fatigue [Unknown]
  - Product administration error [Unknown]
  - Somnolence [Unknown]

NARRATIVE: CASE EVENT DATE: 2020
